FAERS Safety Report 17438050 (Version 1)
Quarter: 2020Q1

REPORT INFORMATION
  Report Type: Report from Study
  Country: IN (occurrence: IN)
  Receive Date: 20200220
  Receipt Date: 20200220
  Transmission Date: 20200409
  Serious: Yes (Other)
  Sender: FDA-Public Use
  Company Number: IN-BRISTOL-MYERS SQUIBB COMPANY-BMS-2020-012116

PATIENT
  Sex: Male

DRUGS (1)
  1. NIVOLUMAB [Suspect]
     Active Substance: NIVOLUMAB
     Indication: RENAL CANCER
     Dosage: 200 MILLIGRAM, Q2WK
     Route: 042
     Dates: start: 20191211

REACTIONS (2)
  - Full blood count decreased [Unknown]
  - Brain neoplasm [Unknown]
